FAERS Safety Report 6703297-8 (Version None)
Quarter: 2010Q2

REPORT INFORMATION
  Report Type: 
  Country: None (occurrence: None)
  Receive Date: 20100430
  Receipt Date: 20100422
  Transmission Date: 20101027
  Serious: Yes (Hospitalization)
  Sender: FDA-Public Use
  Company Number: US-ASTRAZENECA-2010SE17978

PATIENT
  Age: 51 Year
  Sex: Male

DRUGS (12)
  1. CRESTOR [Suspect]
     Indication: BLOOD CHOLESTEROL ABNORMAL
     Route: 048
     Dates: start: 20080101
  2. PLAVIX [Concomitant]
  3. LISINOPRIL [Concomitant]
  4. ALPRAZOLAM [Concomitant]
  5. TRAZODONE HCL [Concomitant]
  6. IMDUR [Concomitant]
     Dosage: 30-60 MG DAILY
  7. METFORMIN [Concomitant]
  8. NORCO [Concomitant]
     Dosage: 10/325
  9. SOMA [Concomitant]
     Dosage: 350MG
  10. ASPIRIN [Concomitant]
  11. MULTI-VITAMIN [Concomitant]
     Dosage: DAILY
  12. NITROGLYCERIN [Concomitant]

REACTIONS (1)
  - ANGIOPLASTY [None]
